FAERS Safety Report 25712349 (Version 2)
Quarter: 2025Q3

REPORT INFORMATION
  Report Type: Spontaneous
  Country: JP (occurrence: JP)
  Receive Date: 20250821
  Receipt Date: 20250829
  Transmission Date: 20251021
  Serious: Yes (Death, Hospitalization, Other)
  Sender: UCB
  Company Number: JP-UCBJ-CD202510908UCBPHAPROD

PATIENT
  Age: 6 Decade
  Sex: Female

DRUGS (1)
  1. LEVETIRACETAM [Suspect]
     Active Substance: LEVETIRACETAM
     Indication: Product used for unknown indication
     Route: 048

REACTIONS (7)
  - Completed suicide [Fatal]
  - Meningioma malignant [Recovering/Resolving]
  - Psychomotor hyperactivity [Unknown]
  - Insomnia [Unknown]
  - Anger [Unknown]
  - Delusion [Unknown]
  - Irritability [Unknown]
